FAERS Safety Report 7750322-1 (Version None)
Quarter: 2011Q3

REPORT INFORMATION
  Report Type: 
  Country: None (occurrence: None)
  Receive Date: 20110914
  Receipt Date: 20110908
  Transmission Date: 20111222
  Serious: Yes (Death, Other)
  Sender: FDA-Public Use
  Company Number: GB-CUBIST-2011S1000596

PATIENT
  Sex: Female

DRUGS (4)
  1. CEFUROXIME [Concomitant]
     Indication: PRODUCT USED FOR UNKNOWN INDICATION
     Route: 042
  2. ACETAMINOPHEN [Concomitant]
     Indication: PAIN
     Dosage: DOSE UNIT:U UNKNOWN
     Route: 065
  3. FLOXACILLIN SODIUM [Concomitant]
     Indication: PRODUCT USED FOR UNKNOWN INDICATION
     Route: 042
  4. CUBICIN [Suspect]
     Indication: SEPSIS
     Dosage: DOSE UNIT:U UNKNOWN
     Route: 065

REACTIONS (2)
  - RENAL IMPAIRMENT [None]
  - DEATH [None]
